FAERS Safety Report 25406950 (Version 2)
Quarter: 2025Q3

REPORT INFORMATION
  Report Type: Spontaneous
  Country: EU (occurrence: EU)
  Receive Date: 20250606
  Receipt Date: 20250711
  Transmission Date: 20251020
  Serious: Yes (Other)
  Sender: ALCON
  Company Number: EU-SANTEN OY-2025-ESP-005683

PATIENT

DRUGS (1)
  1. LATANOPROST\NETARSUDIL MESYLATE [Suspect]
     Active Substance: LATANOPROST\NETARSUDIL MESYLATE
     Indication: Open angle glaucoma
     Route: 047

REACTIONS (2)
  - Corneal oedema [Recovered/Resolved]
  - Intraocular pressure increased [Unknown]
